FAERS Safety Report 21217654 (Version 3)
Quarter: 2022Q4

REPORT INFORMATION
  Report Type: Spontaneous
  Country: US (occurrence: US)
  Receive Date: 20220816
  Receipt Date: 20221011
  Transmission Date: 20230113
  Serious: Yes (Other)
  Sender: FDA-Public Use
  Company Number: US-009507513-2207USA008286

PATIENT
  Age: 75 Year
  Sex: Male

DRUGS (1)
  1. KEYTRUDA [Suspect]
     Active Substance: PEMBROLIZUMAB
     Indication: Lung neoplasm malignant
     Dosage: 200 EVERY 3 WEEKS
     Route: 042
     Dates: start: 2020

REACTIONS (8)
  - Rash pruritic [Recovering/Resolving]
  - Blood potassium increased [Unknown]
  - Sleep disorder [Unknown]
  - Skin exfoliation [Unknown]
  - Peripheral swelling [Unknown]
  - Rash erythematous [Unknown]
  - Pruritus [Not Recovered/Not Resolved]
  - Diarrhoea [Recovered/Resolved]

NARRATIVE: CASE EVENT DATE: 20220501
